FAERS Safety Report 21379749 (Version 1)
Quarter: 2022Q3

REPORT INFORMATION
  Report Type: Spontaneous
  Country: US (occurrence: None)
  Receive Date: 20220923
  Receipt Date: 20220923
  Transmission Date: 20221027
  Serious: Yes (Life-Threatening, Hospitalization)
  Sender: FDA-Public Use
  Company Number: None

PATIENT
  Age: 71 Year
  Sex: Male

DRUGS (1)
  1. RIVAROXABAN [Suspect]
     Active Substance: RIVAROXABAN
     Indication: Portal vein thrombosis
     Dosage: FREQUENCY: TWICE DAILY
     Route: 048
     Dates: start: 20220816, end: 20220825

REACTIONS (4)
  - Haemoperitoneum [None]
  - Haematoma [None]
  - Hypotension [None]
  - Vascular pseudoaneurysm [None]

NARRATIVE: CASE EVENT DATE: 20220825
